FAERS Safety Report 4600648-5 (Version None)
Quarter: 2005Q1

REPORT INFORMATION
  Report Type: 
  Country: None (occurrence: None)
  Receive Date: 20050304
  Receipt Date: 20050221
  Transmission Date: 20050727
  Serious: Yes (Other)
  Sender: FDA-Public Use
  Company Number: 2005035027

PATIENT
  Age: 39 Year
  Sex: Female

DRUGS (2)
  1. CABERGOLINE [Suspect]
     Indication: PARKINSONISM
     Dosage: 4 MG, ORAL
     Route: 048
     Dates: start: 20000315, end: 20050114
  2. MADOPAR (BENSERAZIDE HYDROCHLORIDE, LEVODOPA) [Concomitant]

REACTIONS (1)
  - AORTIC VALVE INCOMPETENCE [None]
